FAERS Safety Report 24717924 (Version 1)
Quarter: 2024Q4

REPORT INFORMATION
  Report Type: Spontaneous
  Country: US (occurrence: None)
  Receive Date: 20241209
  Receipt Date: 20241209
  Transmission Date: 20250114
  Serious: Yes (Other)
  Sender: Public
  Company Number: None

PATIENT
  Age: 71 Year
  Sex: Female
  Weight: 67.5 kg

DRUGS (1)
  1. CYCLOBENZAPRINE [Suspect]
     Active Substance: CYCLOBENZAPRINE
     Indication: Muscle relaxant therapy
     Dosage: 15 TABLETS EVERY 8 HOURS ORAL
     Route: 048
     Dates: start: 20240820, end: 20240820

REACTIONS (2)
  - Dizziness [None]
  - Respiratory arrest [None]

NARRATIVE: CASE EVENT DATE: 20240820
